FAERS Safety Report 20930187 (Version 1)
Quarter: 2022Q2

REPORT INFORMATION
  Report Type: Spontaneous
  Country: IT (occurrence: IT)
  Receive Date: 20220608
  Receipt Date: 20220608
  Transmission Date: 20220720
  Serious: Yes (Other)
  Sender: FDA-Public Use
  Company Number: IT-ACTAVIS-2014-03763

PATIENT
  Age: 68 Year
  Sex: Female

DRUGS (9)
  1. OXALIPLATIN [Suspect]
     Active Substance: OXALIPLATIN
     Indication: Metastases to peritoneum
     Dosage: UNK
     Route: 041
  2. OXALIPLATIN [Suspect]
     Active Substance: OXALIPLATIN
     Indication: Metastases to liver
     Dosage: UNK (UNK; 30 MINUTES AFTER THE THIRD CYCLE)
     Route: 042
     Dates: start: 2011
  3. OXALIPLATIN [Suspect]
     Active Substance: OXALIPLATIN
     Indication: Colon cancer
  4. LEUCOVORIN [Concomitant]
     Active Substance: LEUCOVORIN
     Indication: Colon cancer metastatic
     Dosage: UNK
     Route: 041
  5. LEUCOVORIN [Concomitant]
     Active Substance: LEUCOVORIN
     Indication: Metastases to liver
     Dosage: UNK
     Route: 042
     Dates: start: 2011
  6. LEUCOVORIN [Concomitant]
     Active Substance: LEUCOVORIN
     Indication: Metastases to peritoneum
  7. FLUOROURACIL [Concomitant]
     Active Substance: FLUOROURACIL
     Indication: Colon cancer metastatic
     Dosage: UNK
     Route: 041
  8. FLUOROURACIL [Concomitant]
     Active Substance: FLUOROURACIL
     Indication: Metastases to liver
     Dosage: UNK
     Route: 042
     Dates: start: 2011
  9. FLUOROURACIL [Concomitant]
     Active Substance: FLUOROURACIL
     Indication: Metastases to peritoneum

REACTIONS (1)
  - Thrombotic thrombocytopenic purpura [Recovered/Resolved]
